FAERS Safety Report 10681876 (Version 1)
Quarter: 2014Q4

REPORT INFORMATION
  Report Type: Spontaneous
  Country: US (occurrence: None)
  Receive Date: 20141229
  Receipt Date: 20141229
  Transmission Date: 20150529
  Serious: Yes (Life-Threatening, Hospitalization)
  Sender: FDA-Public Use
  Company Number: None

PATIENT
  Age: 84 Year
  Sex: Female
  Weight: 56 kg

DRUGS (1)
  1. NITROFURANTOIN. [Suspect]
     Active Substance: NITROFURANTOIN
     Indication: URINARY TRACT INFECTION
     Dosage: 1, TWICE DAILY, TAKEN BY MOUTH
     Route: 048
     Dates: start: 20141214, end: 20141217

REACTIONS (1)
  - Seizure [None]

NARRATIVE: CASE EVENT DATE: 20141218
